FAERS Safety Report 7459542-7 (Version None)
Quarter: 2011Q2

REPORT INFORMATION
  Report Type: 
  Country: None (occurrence: None)
  Receive Date: 20110505
  Receipt Date: 20110428
  Transmission Date: 20111010
  Serious: Yes (Hospitalization)
  Sender: FDA-Public Use
  Company Number: US-NOVOPROD-324384

PATIENT
  Sex: Female
  Weight: 78.005 kg

DRUGS (19)
  1. VICTOZA [Suspect]
     Dosage: 1.2 MG, QD
     Dates: start: 20100831, end: 20110215
  2. COENZYME Q-GEL [Concomitant]
     Indication: PRODUCT USED FOR UNKNOWN INDICATION
     Dosage: 200 MG, UNK
     Dates: start: 20100121
  3. OMEGA 3                            /00931501/ [Concomitant]
     Dosage: UNK
     Dates: start: 20070905
  4. PRAVASTATIN [Concomitant]
     Indication: PRODUCT USED FOR UNKNOWN INDICATION
     Dosage: UNK
     Dates: start: 20100331
  5. VICTOZA [Suspect]
     Indication: TYPE 2 DIABETES MELLITUS
     Dosage: 0.6 MG, QD
     Route: 058
     Dates: start: 20100701, end: 20100831
  6. VALTURNA [Concomitant]
     Indication: PRODUCT USED FOR UNKNOWN INDICATION
     Dosage: UNK
     Dates: start: 20101203
  7. ALTERNA [Concomitant]
     Indication: PRODUCT USED FOR UNKNOWN INDICATION
  8. ACTOS [Concomitant]
     Indication: PRODUCT USED FOR UNKNOWN INDICATION
     Dosage: 40 MG, UNK
  9. VITAMIN A [Concomitant]
     Indication: PRODUCT USED FOR UNKNOWN INDICATION
     Dosage: UNK
     Dates: start: 20091119
  10. VICTOZA [Suspect]
     Dosage: UNK
     Dates: start: 20100728, end: 20110215
  11. ACTOS [Concomitant]
     Dosage: 30 MG, QD
     Dates: start: 20080715
  12. BYSTOLIC [Concomitant]
     Indication: PRODUCT USED FOR UNKNOWN INDICATION
     Dosage: 5 MG, QD
     Dates: start: 20101203
  13. ZOCOR [Concomitant]
     Indication: PRODUCT USED FOR UNKNOWN INDICATION
     Dosage: UNK
     Dates: start: 20050601
  14. CITRACAL                           /00471001/ [Concomitant]
     Indication: PRODUCT USED FOR UNKNOWN INDICATION
     Dosage: UNK
     Dates: start: 20070110
  15. ASPIRIN [Concomitant]
     Indication: PRODUCT USED FOR UNKNOWN INDICATION
     Dosage: 81 MG, UNK
  16. MAGNESIUM [Concomitant]
     Indication: PRODUCT USED FOR UNKNOWN INDICATION
     Dosage: UNK
     Dates: start: 20041206
  17. VYTORIN [Concomitant]
     Indication: PRODUCT USED FOR UNKNOWN INDICATION
     Dosage: UNK
     Dates: end: 20051201
  18. MULTIVITAMIN                       /00097801/ [Concomitant]
     Indication: PRODUCT USED FOR UNKNOWN INDICATION
  19. WELCHOL [Concomitant]
     Indication: PRODUCT USED FOR UNKNOWN INDICATION
     Dosage: 625 MG, QD
     Dates: start: 20101105

REACTIONS (2)
  - CHOLELITHIASIS [None]
  - ADENOCARCINOMA PANCREAS [None]
